FAERS Safety Report 7334769-3 (Version None)
Quarter: 2011Q1

REPORT INFORMATION
  Report Type: 
  Country: None (occurrence: None)
  Receive Date: 20110307
  Receipt Date: 20110224
  Transmission Date: 20110831
  Serious: Yes (Hospitalization)
  Sender: FDA-Public Use
  Company Number: KR-JNJFOC-20110203378

PATIENT
  Age: 30 Year
  Sex: Male
  Weight: 61 kg

DRUGS (6)
  1. REMICADE [Suspect]
     Indication: CROHN'S DISEASE
     Route: 042
  2. REMICADE [Suspect]
     Route: 042
  3. FEROBA [Concomitant]
     Indication: IRON DEFICIENCY ANAEMIA
  4. PENTASA [Concomitant]
     Indication: CROHN'S DISEASE
     Route: 048
  5. REMICADE [Suspect]
     Route: 042
  6. FEROBA [Concomitant]
     Indication: HAEMATOCHEZIA

REACTIONS (2)
  - IRON DEFICIENCY ANAEMIA [None]
  - DISSEMINATED TUBERCULOSIS [None]
